FAERS Safety Report 17147200 (Version 1)
Quarter: 2019Q4

REPORT INFORMATION
  Report Type: Other
  Country: FR (occurrence: FR)
  Receive Date: 20191212
  Receipt Date: 20191212
  Transmission Date: 20200122
  Serious: Yes (Hospitalization)
  Sender: FDA-Public Use
  Company Number: FR-VALIDUS PHARMACEUTICALS LLC-FR-2019VAL000839

PATIENT

DRUGS (4)
  1. ROVAMYCINE                         /00074401/ [Suspect]
     Active Substance: SPIRAMYCIN
     Indication: PNEUMONIA
     Dosage: 9 MIU, QD
     Route: 048
     Dates: start: 20191025, end: 20191030
  2. FLUINDIONE [Suspect]
     Active Substance: FLUINDIONE
     Indication: MITRAL VALVE REPLACEMENT
     Dosage: 15 MG, QD
     Route: 048
     Dates: start: 200704, end: 20191025
  3. AMOXICILLIN. [Suspect]
     Active Substance: AMOXICILLIN
     Indication: PNEUMONIA
     Dosage: NP
     Route: 048
     Dates: start: 20191021
  4. CEFOTAXIME SODIUM [Suspect]
     Active Substance: CEFOTAXIME SODIUM
     Indication: PNEUMONIA
     Dosage: 3 G, QD
     Route: 042
     Dates: start: 20191025, end: 20191030

REACTIONS (4)
  - Accidental overdose [Unknown]
  - International normalised ratio increased [Recovered/Resolved]
  - Drug interaction [Recovered/Resolved]
  - Anaemia [Recovered/Resolved]

NARRATIVE: CASE EVENT DATE: 20191025
